FAERS Safety Report 7985411-X (Version None)
Quarter: 2011Q4

REPORT INFORMATION
  Report Type: 
  Country: None (occurrence: None)
  Receive Date: 20111216
  Receipt Date: 20111130
  Transmission Date: 20120403
  Serious: Yes (Hospitalization, Other)
  Sender: FDA-Public Use
  Company Number: JP-ROCHE-781723

PATIENT
  Age: 38 Year
  Sex: Female

DRUGS (39)
  1. MYCOPHENOLATE MOFETIL (CELLCEPT) [Suspect]
     Indication: PROPHYLAXIS AGAINST TRANSPLANT REJECTION
     Route: 048
     Dates: start: 20061217, end: 20061218
  2. MYCOPHENOLATE MOFETIL (CELLCEPT) [Suspect]
     Route: 048
     Dates: start: 20070215, end: 20070215
  3. FERROUS CITRATE [Concomitant]
     Dates: start: 20100114
  4. AMLODIPINE [Concomitant]
     Indication: PROPHYLAXIS
  5. MYCOPHENOLATE MOFETIL (CELLCEPT) [Suspect]
     Route: 048
     Dates: start: 20070309, end: 20070321
  6. MYCOPHENOLATE MOFETIL (CELLCEPT) [Suspect]
     Dates: start: 20090815, end: 20091207
  7. MYCOPHENOLATE MOFETIL (CELLCEPT) [Suspect]
  8. DEPAKENE [Concomitant]
     Indication: PROPHYLAXIS
     Route: 048
     Dates: start: 20061228, end: 20080901
  9. LANSOPRAZOLE [Concomitant]
     Indication: PROPHYLAXIS
     Route: 048
     Dates: start: 20061228, end: 20070323
  10. AMOBAN [Concomitant]
     Indication: PROPHYLAXIS
     Route: 048
     Dates: start: 20061228, end: 20070601
  11. MYCOPHENOLATE MOFETIL (CELLCEPT) [Suspect]
     Route: 048
     Dates: start: 20070216, end: 20070216
  12. MYCOPHENOLATE MOFETIL (CELLCEPT) [Suspect]
     Route: 048
     Dates: start: 20070403, end: 20081009
  13. FERROUS CITRATE [Concomitant]
     Indication: PROPHYLAXIS
     Route: 048
     Dates: start: 20070316, end: 20100113
  14. SULFAMETHOXAZOLE AND TRIMETHOPRIM [Concomitant]
     Indication: PROPHYLAXIS
     Dates: start: 20070108, end: 20070208
  15. MYCOPHENOLATE MOFETIL (CELLCEPT) [Suspect]
     Route: 048
     Dates: start: 20070218, end: 20070307
  16. MYCOPHENOLATE MOFETIL (CELLCEPT) [Suspect]
     Route: 048
     Dates: start: 20070322, end: 20070322
  17. MYCOPHENOLATE MOFETIL (CELLCEPT) [Suspect]
     Route: 048
     Dates: start: 20081027, end: 20081029
  18. MYCOPHENOLATE MOFETIL (CELLCEPT) [Suspect]
     Route: 048
  19. PREDNISOLONE AND PREDNISOLONE ACETATE AND PREDNISOLONE SODIUM SUCCINAT [Suspect]
     Indication: PROPHYLAXIS AGAINST TRANSPLANT REJECTION
     Dosage: 2.5-60 MG
     Route: 048
     Dates: start: 20061225, end: 20070903
  20. MYCOPHENOLATE MOFETIL (CELLCEPT) [Suspect]
     Route: 048
     Dates: start: 20061219, end: 20070214
  21. MYCOPHENOLATE MOFETIL (CELLCEPT) [Suspect]
     Route: 048
     Dates: start: 20070308, end: 20070308
  22. PENTAMIDINE ISETHIONATE [Concomitant]
     Indication: PROPHYLAXIS
  23. MYCOPHENOLATE MOFETIL (CELLCEPT) [Suspect]
     Dates: start: 20090122, end: 20090814
  24. VANCOMYCIN HYCHLORIDE [Concomitant]
     Route: 042
     Dates: start: 20061217, end: 20061223
  25. EMPECID [Concomitant]
     Indication: PROPHYLAXIS
     Route: 050
  26. DEPAKENE [Concomitant]
     Route: 048
  27. IMMUNE GLOBULIN INTRAVENOUS (HUMAN) [Concomitant]
     Indication: HEART TRANSPLANT REJECTION
     Route: 042
     Dates: start: 20061228, end: 20070101
  28. NORVASC [Concomitant]
     Indication: PROPHYLAXIS
     Route: 048
  29. MYCOPHENOLATE MOFETIL (CELLCEPT) [Suspect]
     Route: 048
     Dates: start: 20070217, end: 20070217
  30. MYCOPHENOLATE MOFETIL (CELLCEPT) [Suspect]
     Dates: start: 20100114, end: 20100126
  31. ASPIRIN [Concomitant]
     Indication: PROPHYLAXIS
     Route: 048
     Dates: start: 20061223, end: 20100208
  32. SULFAMETHOXAZOLE AND TRIMETHOPRIM [Concomitant]
     Route: 048
     Dates: start: 20070108, end: 20070208
  33. ZONISAMIDE [Concomitant]
     Indication: PROPHYLAXIS
     Route: 048
  34. PRAVASTATIN SODIUM [Concomitant]
     Indication: PROPHYLAXIS
     Dates: start: 20070105
  35. MUCOSTA [Concomitant]
     Indication: PROPHYLAXIS
     Dates: start: 20070316
  36. VALGANCICLOVIR [Concomitant]
     Indication: PROPHYLAXIS
     Dates: start: 20061227, end: 20070316
  37. TACROLIMUS [Suspect]
     Indication: PROPHYLAXIS AGAINST TRANSPLANT REJECTION
     Dosage: 1.2 - 5.4 MG
     Route: 048
  38. SOLU-MEDROL [Concomitant]
     Route: 042
     Dates: start: 20061218, end: 20061224
  39. LASIX [Concomitant]
     Indication: PROPHYLAXIS
     Route: 048
     Dates: start: 20061221, end: 20070411

REACTIONS (6)
  - EPILEPSY [None]
  - GRANULOCYTOPENIA [None]
  - HAEMOGLOBIN DECREASED [None]
  - STAPHYLOCOCCAL INFECTION [None]
  - UTERINE LEIOMYOMA [None]
  - WHITE BLOOD CELL COUNT DECREASED [None]
